FAERS Safety Report 7013092-0 (Version None)
Quarter: 2010Q3

REPORT INFORMATION
  Report Type: 
  Country: None (occurrence: None)
  Receive Date: 20100924
  Receipt Date: 20100913
  Transmission Date: 20110219
  Serious: Yes (Hospitalization)
  Sender: FDA-Public Use
  Company Number: US-PFIZER INC-2010080493

PATIENT
  Sex: Male
  Weight: 108.39 kg

DRUGS (15)
  1. PEGVISOMANT [Suspect]
     Indication: ACROMEGALY
     Dosage: 10 MG, 1X/DAY
     Route: 058
     Dates: start: 20100315
  2. ADENOSYLCOBALAMIN/FOLIC ACID/METHYLCOBALAMIN/VIT B1/VIT B2/ VIT B6 [Concomitant]
     Dosage: UNK
  3. VITAMIN D [Concomitant]
     Dosage: UNK
  4. ISORDIL [Concomitant]
     Dosage: UNK
  5. DILTIAZEM [Concomitant]
     Dosage: UNK
  6. HYOSCYAMINE [Concomitant]
     Dosage: UNK
  7. PREVACID [Concomitant]
     Dosage: UNK
  8. PLAVIX [Concomitant]
     Dosage: UNK
  9. ACETYLSALICYLIC ACID [Concomitant]
     Dosage: UNK
  10. LEXAPRO [Concomitant]
     Dosage: UNK
  11. TRICOR [Concomitant]
     Dosage: UNK
  12. METOPROLOL [Concomitant]
     Dosage: UNK
  13. LISINOPRIL [Concomitant]
     Dosage: UNK
  14. PRILOSEC [Concomitant]
     Dosage: UNK
  15. NITROGLYCERIN [Concomitant]
     Dosage: UNK

REACTIONS (1)
  - CHOLELITHIASIS [None]
